FAERS Safety Report 7582926-3 (Version None)
Quarter: 2011Q2

REPORT INFORMATION
  Report Type: 
  Country: None (occurrence: None)
  Receive Date: 20110627
  Receipt Date: 20110627
  Transmission Date: 20111010
  Serious: No
  Sender: FDA-Public Use
  Company Number: None

PATIENT
  Age: 38 Year
  Sex: Male
  Weight: 83.0083 kg

DRUGS (1)
  1. HUMIRA [Suspect]
     Dates: start: 20101001, end: 20110301

REACTIONS (28)
  - LUPUS-LIKE SYNDROME [None]
  - ERYTHEMA [None]
  - SKIN EXFOLIATION [None]
  - PRURITUS [None]
  - CHEST DISCOMFORT [None]
  - PYREXIA [None]
  - HAEMORRHAGIC DIATHESIS [None]
  - CARDIAC FAILURE [None]
  - DYSPNOEA [None]
  - FEELING HOT [None]
  - PAIN OF SKIN [None]
  - INCREASED TENDENCY TO BRUISE [None]
  - WEIGHT INCREASED [None]
  - WEIGHT DECREASED [None]
  - FATIGUE [None]
  - MYALGIA [None]
  - JOINT SWELLING [None]
  - RASH [None]
  - PALLOR [None]
  - ULCER [None]
  - ASTHENIA [None]
  - RASH PAPULAR [None]
  - CHEST PAIN [None]
  - URTICARIA [None]
  - ARTHRALGIA [None]
  - PSORIASIS [None]
  - PURULENCE [None]
  - BLOOD DISORDER [None]
